FAERS Safety Report 17811903 (Version 1)
Quarter: 2020Q2

REPORT INFORMATION
  Report Type: Spontaneous
  Country: US (occurrence: US)
  Receive Date: 20200521
  Receipt Date: 20200521
  Transmission Date: 20200714
  Serious: Yes (Hospitalization)
  Sender: FDA-Public Use
  Company Number: None

PATIENT
  Age: 65 Year
  Sex: Female
  Weight: 73.5 kg

DRUGS (1)
  1. ARIMIDEX [Suspect]
     Active Substance: ANASTROZOLE
     Dates: start: 20200424

REACTIONS (7)
  - Dyspepsia [None]
  - Malaise [None]
  - Depression [None]
  - Anaemia [None]
  - Asthenia [None]
  - Thrombocytopenia [None]
  - Gallbladder oedema [None]

NARRATIVE: CASE EVENT DATE: 20200424
